FAERS Safety Report 22149018 (Version 1)
Quarter: 2023Q1

REPORT INFORMATION
  Report Type: Report from Study
  Country: CA (occurrence: CA)
  Receive Date: 20230328
  Receipt Date: 20230328
  Transmission Date: 20230417
  Serious: Yes (Other)
  Sender: FDA-Public Use
  Company Number: CA-ABBVIE-4267043

PATIENT
  Age: 78 Year
  Sex: Female

DRUGS (1)
  1. SKYRIZI [Suspect]
     Active Substance: RISANKIZUMAB-RZAA
     Indication: Psoriasis
     Route: 058
     Dates: start: 20220707, end: 20220707

REACTIONS (8)
  - Adhesion [Unknown]
  - Urinary tract infection [Unknown]
  - Polyp [Unknown]
  - Intestinal polyp [Unknown]
  - Acrochordon [Unknown]
  - Ovarian cyst [Unknown]
  - Umbilical hernia [Unknown]
  - Hyperkeratosis [Unknown]

NARRATIVE: CASE EVENT DATE: 20221101
